FAERS Safety Report 5713098-5 (Version None)
Quarter: 2008Q2

REPORT INFORMATION
  Report Type: 
  Country: None (occurrence: None)
  Receive Date: 20080422
  Receipt Date: 20080417
  Transmission Date: 20081010
  Serious: Yes (Life-Threatening, Hospitalization)
  Sender: FDA-Public Use
  Company Number: JP-ALLERGAN-0802765US

PATIENT
  Sex: Male

DRUGS (5)
  1. BLINDED BOTOX PLACEBO [Suspect]
     Indication: DRUG USE FOR UNKNOWN INDICATION
     Dosage: 300 UNITS, SINGLE
     Route: 030
     Dates: start: 20080110, end: 20080110
  2. BLINDED BOTULINUM TOXIN TYPE A - GENERAL [Suspect]
     Indication: DRUG USE FOR UNKNOWN INDICATION
     Dosage: 300 UNITS, SINGLE
     Route: 030
     Dates: start: 20080110, end: 20080110
  3. NITROPEN (NITROGLYCERIN) [Concomitant]
     Indication: ANGINA PECTORIS
     Dosage: 0.3 MG, QD
     Route: 060
     Dates: start: 20071128, end: 20080227
  4. NITROPEN (NITROGLYCERIN) [Concomitant]
  5. ASPIRIN [Concomitant]
     Indication: ANGINA PECTORIS
     Route: 048
     Dates: end: 20080226

REACTIONS (2)
  - ANGINA PECTORIS [None]
  - ATRIAL FIBRILLATION [None]
